FAERS Safety Report 6067499-9 (Version None)
Quarter: 2009Q1

REPORT INFORMATION
  Report Type: 
  Country: None (occurrence: None)
  Receive Date: 20090121
  Receipt Date: 20071130
  Transmission Date: 20090719
  Serious: Yes (Other)
  Sender: FDA-Public Use
  Company Number: HQWYE086724MAY04

PATIENT
  Age: 51 Year
  Sex: Female

DRUGS (2)
  1. PREMPRO [Suspect]
     Indication: HORMONE REPLACEMENT THERAPY
     Dosage: UNSPECIFIED DOSAGE, ORAL
     Route: 048
     Dates: start: 19981013, end: 20010301
  2. PROVERA [Suspect]

REACTIONS (1)
  - BREAST CANCER FEMALE [None]
